FAERS Safety Report 11437257 (Version 1)
Quarter: 2015Q3

REPORT INFORMATION
  Report Type: Spontaneous
  Country: US (occurrence: US)
  Receive Date: 20150821
  Receipt Date: 20150821
  Transmission Date: 20151125
  Serious: No
  Sender: FDA-Public Use
  Company Number: US-ELI_LILLY_AND_COMPANY-US200703005036

PATIENT
  Sex: Female

DRUGS (3)
  1. CYMBALTA [Suspect]
     Active Substance: DULOXETINE HYDROCHLORIDE
     Dosage: 20 MG, DAILY (1/D)
     Dates: start: 200606
  2. CYMBALTA [Suspect]
     Active Substance: DULOXETINE HYDROCHLORIDE
     Dosage: 20 MG, QOD
  3. CYMBALTA [Suspect]
     Active Substance: DULOXETINE HYDROCHLORIDE
     Indication: FIBROMYALGIA
     Dosage: 30 MG, UNK
     Dates: start: 200603, end: 200606

REACTIONS (6)
  - Abdominal discomfort [Unknown]
  - Influenza [Unknown]
  - Abnormal faeces [Unknown]
  - Weight increased [Unknown]
  - Nausea [Unknown]
  - Insomnia [Recovered/Resolved]
